FAERS Safety Report 20775245 (Version 1)
Quarter: 2022Q2

REPORT INFORMATION
  Report Type: Spontaneous
  Country: US (occurrence: None)
  Receive Date: 20220502
  Receipt Date: 20220502
  Transmission Date: 20220721
  Serious: Yes (Hospitalization)
  Sender: FDA-Public Use
  Company Number: None

PATIENT
  Age: 74 Year
  Sex: Female
  Weight: 85 kg

DRUGS (1)
  1. MOLNUPIRAVIR [Suspect]
     Active Substance: MOLNUPIRAVIR
     Indication: COVID-19

REACTIONS (5)
  - Acute respiratory failure [None]
  - Disease complication [None]
  - COVID-19 [None]
  - Chronic obstructive pulmonary disease [None]
  - Diarrhoea [None]

NARRATIVE: CASE EVENT DATE: 20220501
